FAERS Safety Report 11007713 (Version 2)
Quarter: 2015Q2

REPORT INFORMATION
  Report Type: Spontaneous
  Country: US (occurrence: US)
  Receive Date: 20150409
  Receipt Date: 20150525
  Transmission Date: 20150821
  Serious: No
  Sender: FDA-Public Use
  Company Number: US-JNJFOC-20130412074

PATIENT
  Age: 67 Year
  Sex: Female
  Weight: 61.24 kg

DRUGS (5)
  1. REMICADE [Suspect]
     Active Substance: INFLIXIMAB
     Indication: RHEUMATOID ARTHRITIS
     Route: 042
     Dates: start: 201303
  2. METHOTREXATE [Suspect]
     Active Substance: METHOTREXATE
     Indication: RHEUMATOID ARTHRITIS
     Route: 048
     Dates: start: 2011
  3. SYNTHROID [Concomitant]
     Active Substance: LEVOTHYROXINE SODIUM
     Indication: HYPOTHYROIDISM
     Route: 048
  4. FOLIC ACID. [Concomitant]
     Active Substance: FOLIC ACID
     Indication: STOMATITIS
     Route: 048
     Dates: start: 2012
  5. FOLIC ACID. [Concomitant]
     Active Substance: FOLIC ACID
     Indication: LIVER DISORDER
     Route: 048
     Dates: start: 2012

REACTIONS (2)
  - Nausea [Not Recovered/Not Resolved]
  - Stomatitis [Unknown]

NARRATIVE: CASE EVENT DATE: 201303
